FAERS Safety Report 11195084 (Version 1)
Quarter: 2015Q2

REPORT INFORMATION
  Report Type: Spontaneous
  Country: US (occurrence: None)
  Receive Date: 20150615
  Receipt Date: 20150615
  Transmission Date: 20150821
  Serious: No
  Sender: FDA-Public Use
  Company Number: None

PATIENT
  Sex: Female

DRUGS (1)
  1. IBRANCE [Suspect]
     Active Substance: PALBOCICLIB
     Indication: BREAST CANCER
     Dosage: 100 MG, DAILY X 21 DAYS, OFF 7
     Route: 048
     Dates: start: 20150312

REACTIONS (4)
  - Balance disorder [None]
  - Alopecia [None]
  - Amnesia [None]
  - Coordination abnormal [None]
